FAERS Safety Report 7233614-4 (Version None)
Quarter: 2011Q1

REPORT INFORMATION
  Report Type: 
  Country: None (occurrence: None)
  Receive Date: 20110107
  Receipt Date: 20101222
  Transmission Date: 20110831
  Serious: Yes (Hospitalization)
  Sender: FDA-Public Use
  Company Number: 2010005598

PATIENT
  Age: 74 Year
  Sex: Female

DRUGS (1)
  1. TARCEVA [Suspect]
     Indication: PRODUCT USED FOR UNKNOWN INDICATION
     Dosage: (150 MG, QD), ORAL
     Route: 048
     Dates: start: 20090601

REACTIONS (7)
  - HAIR TEXTURE ABNORMAL [None]
  - ONYCHOMYCOSIS [None]
  - COLLAPSE OF LUNG [None]
  - ALOPECIA [None]
  - RASH [None]
  - NEOPLASM MALIGNANT [None]
  - SKIN EXFOLIATION [None]
